FAERS Safety Report 5740107-X (Version None)
Quarter: 2008Q2

REPORT INFORMATION
  Report Type: 
  Country: None (occurrence: None)
  Receive Date: 20080513
  Receipt Date: 20080428
  Transmission Date: 20081010
  Serious: Yes (Congenital Anomaly)
  Sender: FDA-Public Use
  Company Number: 2008S1007328

PATIENT
  Age: 33 Year
  Sex: Female

DRUGS (6)
  1. CITALOPRAM HYDROBROMIDE [Suspect]
     Indication: DEPRESSION
     Dosage: 10 MG;
     Dates: start: 20070416, end: 20080101
  2. CLOTRIMAZOLE [Concomitant]
  3. ACETAMINOPHEN W/ CODEINE [Concomitant]
  4. IBUPROFEN [Concomitant]
  5. POTASSIUM BICARBONATE [Concomitant]
  6. SODIUM ALGINATE [Concomitant]

REACTIONS (3)
  - ABORTION INDUCED [None]
  - CONGENITAL ANOMALY [None]
  - MATERNAL DRUGS AFFECTING FOETUS [None]
